FAERS Safety Report 23665611 (Version 2)
Quarter: 2024Q1

REPORT INFORMATION
  Report Type: Report from Study
  Country: HU (occurrence: HU)
  Receive Date: 20240323
  Receipt Date: 20240329
  Transmission Date: 20240409
  Serious: Yes (Hospitalization)
  Sender: FDA-Public Use
  Company Number: HU-ABBVIE-5679149

PATIENT
  Age: 24 Year
  Sex: Male

DRUGS (2)
  1. RINVOQ [Suspect]
     Active Substance: UPADACITINIB
     Indication: Dermatitis atopic
     Dosage: LAST ADMIN DATE: DEC 2023
     Route: 048
     Dates: start: 20230615
  2. TELVIRAN [Concomitant]
     Indication: Herpes ophthalmic
     Dosage: FORM STRENGTH: 800 MILLIGRAM
     Dates: start: 20240125

REACTIONS (5)
  - Eye operation [Recovered/Resolved]
  - Laboratory test abnormal [Recovered/Resolved]
  - Herpes ophthalmic [Recovering/Resolving]
  - Eye infection fungal [Recovering/Resolving]
  - Lymphocyte count decreased [Recovered/Resolved]

NARRATIVE: CASE EVENT DATE: 20240101
